FAERS Safety Report 13295596 (Version 2)
Quarter: 2017Q1

REPORT INFORMATION
  Report Type: Spontaneous
  Country: US (occurrence: US)
  Receive Date: 20170303
  Receipt Date: 20170309
  Transmission Date: 20170428
  Serious: Yes (Other)
  Sender: FDA-Public Use
  Company Number: US-SUNOVION-2017SUN000924

PATIENT
  Sex: Female

DRUGS (1)
  1. LATUDA [Suspect]
     Active Substance: LURASIDONE HYDROCHLORIDE
     Indication: DEPRESSION
     Dosage: 80 MG, QD
     Route: 048

REACTIONS (4)
  - Depression [Not Recovered/Not Resolved]
  - Off label use [Unknown]
  - Renal disorder [Not Recovered/Not Resolved]
  - Decreased activity [Not Recovered/Not Resolved]
